FAERS Safety Report 23691645 (Version 1)
Quarter: 2024Q2

REPORT INFORMATION
  Report Type: Spontaneous
  Country: US (occurrence: US)
  Receive Date: 20240401
  Receipt Date: 20240401
  Transmission Date: 20240716
  Serious: Yes (Other)
  Sender: FDA-Public Use
  Company Number: US-ABBVIE-5696578

PATIENT
  Age: 60 Year
  Sex: Female
  Weight: 84 kg

DRUGS (2)
  1. REFRESH CELLUVISC [Suspect]
     Active Substance: CARBOXYMETHYLCELLULOSE SODIUM
     Indication: Dry eye
     Dosage: FREQUENCY: 2 TO 6 DROPS PER DAY?FORM STRENGTH: 10MG/ML SOLUTION UNIT DOSE ?START DATE: EITHER 200...
     Route: 047
     Dates: end: 202311
  2. REFRESH P.M. [Concomitant]
     Active Substance: MINERAL OIL\PETROLATUM
     Indication: Dry eye
     Dosage: START DATE TEXT: AUG-2023 OR SEP-2023
     Route: 047

REACTIONS (3)
  - Cataract [Recovered/Resolved]
  - Off label use [Unknown]
  - Dry eye [Unknown]

NARRATIVE: CASE EVENT DATE: 20080101
